FAERS Safety Report 23823233 (Version 2)
Quarter: 2024Q2

REPORT INFORMATION
  Report Type: Spontaneous
  Country: CH (occurrence: CH)
  Receive Date: 20240507
  Receipt Date: 20240531
  Transmission Date: 20240716
  Serious: Yes (Hospitalization)
  Sender: FDA-Public Use
  Company Number: CH-ABBVIE-5742148

PATIENT
  Age: 62 Year
  Sex: Male

DRUGS (9)
  1. SKYRIZI [Suspect]
     Active Substance: RISANKIZUMAB-RZAA
     Indication: Psoriasis
     Dosage: DOSAGE UNKNOWN
     Route: 058
     Dates: start: 2021
  2. TORSEMIDE [Concomitant]
     Active Substance: TORSEMIDE
     Indication: Product used for unknown indication
  3. AMOXICILLIN\CLAVULANATE POTASSIUM [Suspect]
     Active Substance: AMOXICILLIN\CLAVULANATE POTASSIUM
     Indication: Infection
     Dosage: DOSAGE UNKNOWN
     Route: 048
     Dates: start: 202402, end: 20240209
  4. DUPIXENT [Suspect]
     Active Substance: DUPILUMAB
     Indication: Eczema
     Dosage: 600 MG FIRST ADMINISTRATION, THEN 300 MG
     Route: 058
     Dates: start: 20240115, end: 20240131
  5. CALCITRIOL [Concomitant]
     Active Substance: CALCITRIOL
     Indication: Product used for unknown indication
     Dosage: 0.5 MILLIGRAM
  6. LERCANIDIPINE [Concomitant]
     Active Substance: LERCANIDIPINE
     Indication: Product used for unknown indication
  7. IRBESARTANA [Concomitant]
     Indication: Product used for unknown indication
     Dosage: 150 MILLIGRAM
  8. OLMESARTAN [Concomitant]
     Active Substance: OLMESARTAN
     Indication: Product used for unknown indication
     Dosage: 150 MILLIGRAM
  9. TIZANIDINE [Concomitant]
     Active Substance: TIZANIDINE
     Indication: Product used for unknown indication

REACTIONS (12)
  - Lymphadenopathy [Recovering/Resolving]
  - Eosinophilia [Recovered/Resolved]
  - Drug reaction with eosinophilia and systemic symptoms [Recovering/Resolving]
  - Hospitalisation [Unknown]
  - Autoimmune myocarditis [Recovered/Resolved]
  - Arthralgia [Unknown]
  - Cardiac disorder [Recovering/Resolving]
  - Inflammation [Recovering/Resolving]
  - Chronic kidney disease [Recovering/Resolving]
  - Dermatitis atopic [Unknown]
  - Pyrexia [Unknown]
  - Dermatitis contact [Unknown]

NARRATIVE: CASE EVENT DATE: 20240319
